FAERS Safety Report 8797496 (Version 1)
Quarter: 2012Q4

REPORT INFORMATION
  Report Type: 
  Country: US (occurrence: US)
  Receive Date: 20120919
  Receipt Date: 20120919
  Transmission Date: 20130627
  Serious: Yes (Death)
  Sender: FDA-Public Use
  Company Number: US-ROCHE-1098260

PATIENT
  Sex: Female

DRUGS (3)
  1. AVASTIN [Suspect]
     Indication: OVARIAN CANCER
     Dosage: In Aug/Sep of 2005 received 3 doses
     Route: 065
  2. DOXIL (UNITED STATES) [Concomitant]
  3. HYCAMTIN [Concomitant]

REACTIONS (1)
  - Death [Fatal]
